FAERS Safety Report 11646268 (Version 2)
Quarter: 2016Q2

REPORT INFORMATION
  Report Type: Spontaneous
  Country: US (occurrence: US)
  Receive Date: 20151020
  Receipt Date: 20160504
  Transmission Date: 20160815
  Serious: No
  Sender: FDA-Public Use
  Company Number: US-ROCHE-ITM201506IM018315

PATIENT
  Sex: Female
  Weight: 64.47 kg

DRUGS (1)
  1. ESBRIET [Suspect]
     Active Substance: PIRFENIDONE
     Indication: IDIOPATHIC PULMONARY FIBROSIS
     Dosage: TAKES THREEE CAPSULES THREE TIMES A DAY WITH FOOD
     Route: 048
     Dates: start: 20150310

REACTIONS (4)
  - Photosensitivity reaction [Unknown]
  - Pain in extremity [Unknown]
  - Dyspepsia [Unknown]
  - Arthralgia [Unknown]
